FAERS Safety Report 9730088 (Version 1)
Quarter: 2013Q4

REPORT INFORMATION
  Report Type: Spontaneous
  Country: JP (occurrence: JP)
  Receive Date: 20131204
  Receipt Date: 20131204
  Transmission Date: 20140711
  Serious: Yes (Hospitalization, Other)
  Sender: FDA-Public Use
  Company Number: JP-BAXTER-2013BAX047611

PATIENT
  Sex: Male

DRUGS (2)
  1. DIANEAL-N PD-4 2.5 PD SOLUTION [Suspect]
     Indication: RENAL FAILURE CHRONIC
     Route: 033
     Dates: start: 20110427
  2. EXTRANEAL PD SOLUTION [Suspect]
     Indication: RENAL FAILURE CHRONIC
     Route: 033
     Dates: start: 20110427

REACTIONS (3)
  - Upper limb fracture [Unknown]
  - Fall [Unknown]
  - Contusion [Unknown]
